FAERS Safety Report 4460127-5 (Version None)
Quarter: 2004Q3

REPORT INFORMATION
  Report Type: 
  Country: None (occurrence: None)
  Receive Date: 20040928
  Receipt Date: 20031222
  Transmission Date: 20050211
  Serious: No
  Sender: FDA-Public Use
  Company Number: US-GLAXOSMITHKLINE-A0443928A

PATIENT
  Age: 53 Year
  Sex: Female
  Weight: 72.7 kg

DRUGS (3)
  1. SEREVENT [Suspect]
     Indication: ASTHMA
     Dosage: 1PUFF TWICE PER DAY
     Route: 055
  2. UREA LOTION [Concomitant]
     Indication: RASH
  3. SALICYLIC ACID [Concomitant]
     Indication: RASH

REACTIONS (1)
  - RASH [None]
